FAERS Safety Report 23103817 (Version 1)
Quarter: 2023Q4

REPORT INFORMATION
  Report Type: Report from Study
  Country: US (occurrence: US)
  Receive Date: 20231025
  Receipt Date: 20231025
  Transmission Date: 20240110
  Serious: Yes (Hospitalization)
  Sender: FDA-Public Use
  Company Number: US-ABBVIE-5461604

PATIENT
  Age: 35 Year
  Sex: Male

DRUGS (1)
  1. HUMIRA [Suspect]
     Active Substance: ADALIMUMAB
     Indication: Product used for unknown indication
     Dosage: THERAPY END DATE: OCT 2023
     Route: 058
     Dates: start: 20231016

REACTIONS (2)
  - Cardiac arrest [Recovered/Resolved]
  - Injection site hypersensitivity [Recovered/Resolved]

NARRATIVE: CASE EVENT DATE: 20231001
